FAERS Safety Report 24841633 (Version 1)
Quarter: 2025Q1

REPORT INFORMATION
  Report Type: Spontaneous
  Country: CN (occurrence: CN)
  Receive Date: 20250114
  Receipt Date: 20250114
  Transmission Date: 20250409
  Serious: Yes (Other)
  Sender: PFIZER
  Company Number: CN-PFIZER INC-PV202500004604

PATIENT
  Age: 78 Year
  Sex: Female
  Weight: 50 kg

DRUGS (2)
  1. VFEND [Suspect]
     Active Substance: VORICONAZOLE
     Indication: Symptomatic treatment
     Dosage: 160 MG, 2X/DAY
     Route: 041
     Dates: start: 20241219, end: 20241221
  2. VFEND [Suspect]
     Active Substance: VORICONAZOLE
     Indication: Anti-infective therapy

REACTIONS (3)
  - Delirium [Recovering/Resolving]
  - Hallucination [Recovering/Resolving]
  - Speech disorder [Recovering/Resolving]

NARRATIVE: CASE EVENT DATE: 20241219
